FAERS Safety Report 18189681 (Version 1)
Quarter: 2020Q3

REPORT INFORMATION
  Report Type: Spontaneous
  Country: US (occurrence: US)
  Receive Date: 20200825
  Receipt Date: 20200825
  Transmission Date: 20201103
  Serious: No
  Sender: FDA-Public Use
  Company Number: US-CELLTRION INC.-2020US023848

PATIENT

DRUGS (1)
  1. INFLECTRA [Suspect]
     Active Substance: INFLIXIMAB-DYYB
     Indication: PRODUCT USED FOR UNKNOWN INDICATION
     Dosage: UNK (8 VIALS EVERY 4WEEKS AND THEN EVERY 6 WEEKS)
     Route: 065

REACTIONS (2)
  - Product dose omission issue [Unknown]
  - Therapy change [Unknown]
